FAERS Safety Report 9413286 (Version 1)
Quarter: 2013Q3

REPORT INFORMATION
  Report Type: Spontaneous
  Country: DE (occurrence: DE)
  Receive Date: 20130722
  Receipt Date: 20130722
  Transmission Date: 20140515
  Serious: Yes (Other)
  Sender: FDA-Public Use
  Company Number: DE-OTSUKA-EU-2013-10176

PATIENT
  Age: 46 Year
  Sex: Male

DRUGS (1)
  1. SAMSCA [Suspect]
     Indication: CONGENITAL CYSTIC KIDNEY DISEASE
     Dosage: 90 MG MILLIGRAM(S), DAILY DOSE

REACTIONS (2)
  - Hepatic steatosis [Unknown]
  - Off label use [Unknown]
